FAERS Safety Report 7558616-X (Version None)
Quarter: 2011Q2

REPORT INFORMATION
  Report Type: 
  Country: None (occurrence: None)
  Receive Date: 20110621
  Receipt Date: 20110613
  Transmission Date: 20111010
  Serious: Yes (Hospitalization)
  Sender: FDA-Public Use
  Company Number: US-BIOGENIDEC-2011BI021701

PATIENT
  Age: 31 Year
  Sex: Female

DRUGS (5)
  1. AVONEX [Suspect]
     Indication: MULTIPLE SCLEROSIS
     Route: 030
     Dates: start: 20010309, end: 20070101
  2. AVONEX [Suspect]
     Route: 030
     Dates: start: 20090827
  3. AVONEX [Suspect]
     Route: 030
     Dates: start: 20090910
  4. AVONEX [Suspect]
     Route: 030
     Dates: start: 20090903
  5. AVONEX [Suspect]
     Route: 030
     Dates: start: 20090917

REACTIONS (5)
  - BASEDOW'S DISEASE [None]
  - SINUS HEADACHE [None]
  - MULTIPLE SCLEROSIS RELAPSE [None]
  - SINUSITIS [None]
  - VAGINAL INFECTION [None]
